FAERS Safety Report 7149294-2 (Version None)
Quarter: 2010Q4

REPORT INFORMATION
  Report Type: 
  Country: None (occurrence: None)
  Receive Date: 20101209
  Receipt Date: 20101201
  Transmission Date: 20110411
  Serious: Yes (Hospitalization, Other)
  Sender: FDA-Public Use
  Company Number: BR-ABBOTT-09P-020-0599741-00

PATIENT
  Sex: Female
  Weight: 67 kg

DRUGS (7)
  1. HUMIRA [Suspect]
     Indication: RHEUMATOID ARTHRITIS
     Route: 058
     Dates: start: 20081201
  2. HUMIRA [Suspect]
     Route: 058
  3. ARAVA [Concomitant]
     Indication: ARTHRITIS
     Route: 048
     Dates: start: 20040101
  4. METICORTEN [Concomitant]
     Indication: RHEUMATOID ARTHRITIS
     Route: 048
     Dates: start: 19980101
  5. CYCLOBENZAPRINE [Concomitant]
     Indication: INTERVERTEBRAL DISC PROTRUSION
     Route: 048
     Dates: start: 20100423
  6. COMBINED FORMULA: FAMOTIDINE, CYCLOBENZAPRINE, MELOXICAM, CHLOROQUINE [Concomitant]
     Indication: INTERVERTEBRAL DISC PROTRUSION
     Dosage: 20 MG/(2.5MG/(?)10MG)/7.5 MG/100MG
     Route: 048
     Dates: start: 20091201
  7. COMBINED FORMULA: UNKNOWN, CAFFEINE, PARACETAMOL, FAMOTIDINE [Concomitant]
     Indication: INTERVERTEBRAL DISC PROTRUSION
     Dosage: 25MG/10MG/500MG/10MG
     Dates: start: 20091201

REACTIONS (16)
  - ARTHRALGIA [None]
  - BACK PAIN [None]
  - BEDRIDDEN [None]
  - DEPRESSION [None]
  - GAIT DISTURBANCE [None]
  - HYPERSENSITIVITY [None]
  - HYPERTENSION [None]
  - INSOMNIA [None]
  - INTERVERTEBRAL DISC PROTRUSION [None]
  - INTESTINAL MASS [None]
  - NERVOUSNESS [None]
  - NODULE ON EXTREMITY [None]
  - OSTEOARTHRITIS [None]
  - PRURITUS [None]
  - SKIN INFECTION [None]
  - VISUAL ACUITY REDUCED [None]
